FAERS Safety Report 5229839-X (Version None)
Quarter: 2007Q1

REPORT INFORMATION
  Report Type: 
  Country: None (occurrence: None)
  Receive Date: 20070206
  Receipt Date: 20060727
  Transmission Date: 20070707
  Serious: No
  Sender: FDA-Public Use
  Company Number: US-GLAXOSMITHKLINE-A0558617A

PATIENT
  Age: 36 Year
  Sex: Female

DRUGS (5)
  1. PAXIL [Suspect]
     Indication: DEPRESSION
     Route: 048
     Dates: start: 19960101
  2. PAROXETINE HYDROCHLORIDE [Suspect]
     Indication: DEPRESSION
     Dosage: 40MG UNKNOWN
     Route: 048
  3. BUPROPION HYDROCHLORIDE [Concomitant]
     Dosage: 150MG TWICE PER DAY
     Route: 048
  4. LIPITOR [Concomitant]
  5. PLAVIX [Concomitant]

REACTIONS (6)
  - DISSOCIATION [None]
  - DRUG WITHDRAWAL SYNDROME [None]
  - IRRITABILITY [None]
  - NAUSEA [None]
  - NERVOUSNESS [None]
  - RESPIRATORY RATE INCREASED [None]
